FAERS Safety Report 13503954 (Version 1)
Quarter: 2017Q2

REPORT INFORMATION
  Report Type: Spontaneous
  Country: US (occurrence: US)
  Receive Date: 20170502
  Receipt Date: 20170502
  Transmission Date: 20170830
  Serious: Yes (Other)
  Sender: FDA-Public Use
  Company Number: US-LEXICON PHARMACEUTICALS, INC-17-1606-00072

PATIENT
  Sex: Male

DRUGS (19)
  1. SPIRONOLACT [Concomitant]
  2. SANDOSTATIN LAR DEPOT [Concomitant]
     Active Substance: OCTREOTIDE ACETATE
  3. IMODIUM [Concomitant]
     Active Substance: LOPERAMIDE HYDROCHLORIDE
  4. FINASTERIDE. [Concomitant]
     Active Substance: FINASTERIDE
  5. LISINOPRIL. [Concomitant]
     Active Substance: LISINOPRIL
  6. MIRALAX [Concomitant]
     Active Substance: POLYETHYLENE GLYCOL 3350
  7. VANCOCIN [Concomitant]
     Active Substance: VANCOMYCIN HYDROCHLORIDE
  8. OXYBUTYNIN CHLORIDE. [Concomitant]
     Active Substance: OXYBUTYNIN CHLORIDE
  9. SODIUM CHLORIDE. [Concomitant]
     Active Substance: SODIUM CHLORIDE
  10. IBUPROFEN. [Concomitant]
     Active Substance: IBUPROFEN
  11. TAMSULOSIN [Concomitant]
     Active Substance: TAMSULOSIN
  12. TIMOLOL. [Concomitant]
     Active Substance: TIMOLOL
  13. TRAMADOL. [Concomitant]
     Active Substance: TRAMADOL
  14. AFINITOR [Concomitant]
     Active Substance: EVEROLIMUS
  15. POTASSIUM CITRATE. [Concomitant]
     Active Substance: POTASSIUM CITRATE
  16. ACETAMIN [Concomitant]
     Active Substance: ACETAMINOPHEN
  17. TELOTRISTAT ETHYL [Suspect]
     Active Substance: TELOTRISTAT ETHYL
     Indication: CARCINOID SYNDROME
     Route: 048
     Dates: start: 20170315
  18. METOPROLOL SUCCINATE. [Concomitant]
     Active Substance: METOPROLOL SUCCINATE
  19. SENOKOT [Concomitant]
     Active Substance: SENNOSIDES

REACTIONS (1)
  - Clostridium difficile infection [Unknown]

NARRATIVE: CASE EVENT DATE: 2017
